FAERS Safety Report 12941336 (Version 1)
Quarter: 2016Q4

REPORT INFORMATION
  Report Type: Spontaneous
  Country: US (occurrence: US)
  Receive Date: 20161115
  Receipt Date: 20161115
  Transmission Date: 20170207
  Serious: Yes (Hospitalization)
  Sender: FDA-Public Use
  Company Number: None

PATIENT
  Age: 84 Year
  Sex: Male
  Weight: 79 kg

DRUGS (11)
  1. VERSED [Suspect]
     Active Substance: MIDAZOLAM HYDROCHLORIDE
     Indication: SEDATION
     Dosage: RECENT?
     Route: 042
  2. FENTANYL. [Suspect]
     Active Substance: FENTANYL
     Indication: SEDATION
     Dosage: RECENT
     Route: 042
  3. APAP [Concomitant]
     Active Substance: ACETAMINOPHEN
  4. NORVASC [Concomitant]
     Active Substance: AMLODIPINE BESYLATE
  5. LIPITOR [Concomitant]
     Active Substance: ATORVASTATIN CALCIUM
  6. VITAMIN D [Concomitant]
     Active Substance: CHOLECALCIFEROL
  7. SYNTHROID [Concomitant]
     Active Substance: LEVOTHYROXINE SODIUM
  8. ARICEPT [Concomitant]
     Active Substance: DONEPEZIL HYDROCHLORIDE
  9. CEROVITE [Concomitant]
     Active Substance: FOLIC ACID\IRON
  10. LOFIBRA [Concomitant]
     Active Substance: FENOFIBRATE
  11. ECOTRIN [Concomitant]
     Active Substance: ASPIRIN

REACTIONS (1)
  - Atrioventricular block complete [None]

NARRATIVE: CASE EVENT DATE: 20150825
